FAERS Safety Report 8013502-6 (Version None)
Quarter: 2011Q4

REPORT INFORMATION
  Report Type: 
  Country: None (occurrence: None)
  Receive Date: 20111229
  Receipt Date: 20111223
  Transmission Date: 20120403
  Serious: Yes (Death)
  Sender: FDA-Public Use
  Company Number: US-CUBIST-2011S1000868

PATIENT
  Age: 82 Year
  Sex: Female
  Weight: 59.2 kg

DRUGS (2)
  1. CUBICIN [Suspect]
     Route: 065
     Dates: start: 20070315, end: 20070401
  2. CUBICIN [Suspect]
     Indication: SKIN INFECTION
     Route: 065
     Dates: start: 20070315, end: 20070401

REACTIONS (1)
  - DEATH [None]
